FAERS Safety Report 6398538-3 (Version None)
Quarter: 2009Q4

REPORT INFORMATION
  Report Type: 
  Country: None (occurrence: None)
  Receive Date: 20091013
  Receipt Date: 20091001
  Transmission Date: 20100525
  Serious: Yes (Hospitalization)
  Sender: FDA-Public Use
  Company Number: FR-PFIZER INC-2009276673

PATIENT
  Age: 62 Year

DRUGS (12)
  1. EPIRUBICIN HCL [Suspect]
     Indication: BREAST CANCER
     Dosage: UNK
     Route: 042
     Dates: start: 20090709, end: 20090730
  2. ENDOXAN [Suspect]
     Indication: BREAST CANCER
     Dosage: UNK
     Route: 042
     Dates: start: 20090709, end: 20090819
  3. FLUOROURACIL MERCK [Suspect]
     Indication: BREAST CANCER
     Dosage: UNK
     Route: 042
     Dates: start: 20090709, end: 20090819
  4. BI-PROFENID [Suspect]
     Dosage: UNK
     Route: 048
     Dates: start: 20090709, end: 20090730
  5. EFFERALGAN [Suspect]
     Dosage: UNK
     Route: 048
     Dates: start: 20090616, end: 20090730
  6. ABUFENE [Concomitant]
  7. LYRICA [Concomitant]
  8. TRAMADOL [Concomitant]
  9. NEXIUM [Concomitant]
  10. INNOHEP [Concomitant]
  11. VITAMIN B1 AND B6 [Concomitant]
  12. NARAMIG [Concomitant]

REACTIONS (3)
  - BREAST CANCER [None]
  - CONDITION AGGRAVATED [None]
  - CYTOLYTIC HEPATITIS [None]
